FAERS Safety Report 9406419 (Version 1)
Quarter: 2013Q3

REPORT INFORMATION
  Report Type: Spontaneous
  Country: US (occurrence: US)
  Receive Date: 20130718
  Receipt Date: 20130718
  Transmission Date: 20140515
  Serious: Yes (Other)
  Sender: FDA-Public Use
  Company Number: US-ROCHE-1249551

PATIENT
  Sex: Female

DRUGS (5)
  1. XELODA [Suspect]
     Indication: PRODUCT USED FOR UNKNOWN INDICATION
     Route: 048
     Dates: start: 20130608
  2. HERCEPTIN [Concomitant]
  3. VITAMIN D3 [Concomitant]
  4. ZOMETA [Concomitant]
  5. ZOLADEX [Concomitant]

REACTIONS (3)
  - Chest pain [Unknown]
  - Arterial spasm [Unknown]
  - Paraesthesia [Unknown]
